FAERS Safety Report 14730396 (Version 1)
Quarter: 2018Q2

REPORT INFORMATION
  Report Type: Spontaneous
  Country: GB (occurrence: GB)
  Receive Date: 20180406
  Receipt Date: 20180406
  Transmission Date: 20180711
  Serious: Yes (Hospitalization)
  Sender: FDA-Public Use
  Company Number: GB-ANIPHARMA-2018-UK-000030

PATIENT
  Age: 63 Year
  Sex: Female

DRUGS (9)
  1. AMLODIPINE [Concomitant]
     Active Substance: AMLODIPINE BESYLATE
     Dosage: 10MG DAILY
     Route: 048
     Dates: start: 20170628
  2. RANOLAZINE. [Concomitant]
     Active Substance: RANOLAZINE
     Dosage: 750MG BID
     Route: 048
     Dates: start: 20170512
  3. GLYCERYL TRINITRATE [Concomitant]
     Active Substance: NITROGLYCERIN
     Dosage: 2 DF PRN
     Dates: start: 20170512
  4. ASPIRIN. [Concomitant]
     Active Substance: ASPIRIN
     Dosage: 75MG DAILY
     Route: 048
     Dates: start: 20040403
  5. BLINDED STUDY MEDICATION ACZ885 [Suspect]
     Active Substance: CANAKINUMAB
     Indication: PRODUCT USED FOR UNKNOWN INDICATION
     Dosage: 50MG QUARTERLY
     Dates: start: 20120901
  6. METFORMIN [Concomitant]
     Active Substance: METFORMIN HYDROCHLORIDE
     Dosage: 1GM TID
     Route: 048
     Dates: start: 20040424
  7. BISOPROLOL [Suspect]
     Active Substance: BISOPROLOL
     Indication: PROPHYLAXIS
     Dosage: 10MG DAILY
     Route: 048
     Dates: start: 20121229, end: 20170720
  8. CANDESARTAN CILEXETIL. [Suspect]
     Active Substance: CANDESARTAN CILEXETIL
     Indication: PRODUCT USED FOR UNKNOWN INDICATION
     Route: 048
  9. INSULIN [Suspect]
     Active Substance: INSULIN NOS
     Indication: TYPE 2 DIABETES MELLITUS

REACTIONS (3)
  - Hypoglycaemia [Recovered/Resolved]
  - Sinus arrest [Unknown]
  - Hyperkalaemia [Recovered/Resolved]

NARRATIVE: CASE EVENT DATE: 20170702
